FAERS Safety Report 8396161-2 (Version None)
Quarter: 2012Q2

REPORT INFORMATION
  Report Type: 
  Country: None (occurrence: None)
  Receive Date: 20120530
  Receipt Date: 20120521
  Transmission Date: 20120825
  Serious: Yes (Other)
  Sender: FDA-Public Use
  Company Number: US-GLAXOSMITHKLINE-A0979159A

PATIENT
  Age: 34 Year
  Sex: Female

DRUGS (12)
  1. TRIAMCINOLONE [Concomitant]
  2. BENADRYL [Suspect]
     Indication: MIGRAINE
  3. PHENERGAN [Suspect]
     Indication: MIGRAINE
  4. CLONAZEPAM [Concomitant]
  5. UNSPECIFIED MEDICATION [Concomitant]
  6. HALCINONIDE [Concomitant]
  7. TORADOL [Suspect]
     Indication: MIGRAINE
  8. HUMIRA [Suspect]
     Indication: PSORIASIS
     Route: 065
     Dates: start: 20120215
  9. PROTON PUMP INHIBITOR [Concomitant]
  10. DIPHENHYDRAMINE HCL [Concomitant]
  11. IMITREX [Suspect]
     Indication: MIGRAINE
     Route: 065
     Dates: start: 20120319
  12. TYLENOL [Suspect]
     Indication: MIGRAINE

REACTIONS (3)
  - MUSCLE SPASMS [None]
  - BLOOD PRESSURE INCREASED [None]
  - HYPERSENSITIVITY [None]
